FAERS Safety Report 9372503 (Version 1)
Quarter: 2013Q2

REPORT INFORMATION
  Report Type: Report from Study
  Country: US (occurrence: US)
  Receive Date: 20130627
  Receipt Date: 20130627
  Transmission Date: 20140414
  Serious: Yes (Life-Threatening, Other)
  Sender: FDA-Public Use
  Company Number: US-MYLANLABS-2012S1026502

PATIENT
  Age: 58 Year
  Sex: Male

DRUGS (6)
  1. CLOZAPINE TABLETS [Suspect]
     Indication: SCHIZOPHRENIA
     Route: 048
     Dates: start: 20100330, end: 20121221
  2. CHEMOTHERAPEUTICS [Suspect]
     Indication: NEOPLASM MALIGNANT
     Dates: start: 20121213
  3. NAPROXEN [Concomitant]
  4. DEXAMETHASONE [Concomitant]
  5. LIPITOR [Concomitant]
  6. CLONIDINE [Concomitant]

REACTIONS (2)
  - Agranulocytosis [Not Recovered/Not Resolved]
  - Leukopenia [Not Recovered/Not Resolved]
